FAERS Safety Report 5677066-4 (Version None)
Quarter: 2008Q1

REPORT INFORMATION
  Report Type: 
  Country: None (occurrence: None)
  Receive Date: 20080318
  Receipt Date: 20080304
  Transmission Date: 20080703
  Serious: Yes (Hospitalization)
  Sender: FDA-Public Use
  Company Number: 2008SP000489

PATIENT
  Age: 87 Year
  Sex: Female

DRUGS (11)
  1. XOPENEX [Suspect]
     Indication: CHRONIC OBSTRUCTIVE PULMONARY DISEASE
     Dosage: ;TID;INHALATION : ;INHALATION
     Route: 055
     Dates: start: 20080101, end: 20080302
  2. XOPENEX [Suspect]
     Indication: INFLUENZA
     Dosage: ;TID;INHALATION : ;INHALATION
     Route: 055
     Dates: start: 20080101, end: 20080302
  3. XOPENEX [Suspect]
     Indication: LUNG INFECTION
     Dosage: ;TID;INHALATION : ;INHALATION
     Route: 055
     Dates: start: 20080101, end: 20080302
  4. XOPENEX [Suspect]
     Indication: CHRONIC OBSTRUCTIVE PULMONARY DISEASE
     Dosage: ;TID;INHALATION : ;INHALATION
     Route: 055
     Dates: start: 20080301
  5. XOPENEX [Suspect]
     Indication: INFLUENZA
     Dosage: ;TID;INHALATION : ;INHALATION
     Route: 055
     Dates: start: 20080301
  6. XOPENEX [Suspect]
     Indication: LUNG INFECTION
     Dosage: ;TID;INHALATION : ;INHALATION
     Route: 055
     Dates: start: 20080301
  7. PREDNISONE TAB [Suspect]
     Dates: end: 20080301
  8. COZAAR [Concomitant]
  9. PROPRANOLOL [Concomitant]
  10. ALBUTEROL [Concomitant]
  11. TORSEMIDE [Concomitant]

REACTIONS (13)
  - ABNORMAL BEHAVIOUR [None]
  - ANGINA PECTORIS [None]
  - BLOOD POTASSIUM DECREASED [None]
  - CHROMATURIA [None]
  - COUGH [None]
  - DRUG EFFECT DECREASED [None]
  - FEELING ABNORMAL [None]
  - FLUID RETENTION [None]
  - OEDEMA PERIPHERAL [None]
  - PULMONARY OEDEMA [None]
  - SELF-INJURIOUS IDEATION [None]
  - SLUGGISHNESS [None]
  - THIRST [None]
